FAERS Safety Report 11122714 (Version 2)
Quarter: 2015Q2

REPORT INFORMATION
  Report Type: Spontaneous
  Country: US (occurrence: US)
  Receive Date: 20150519
  Receipt Date: 20150520
  Transmission Date: 20150821
  Serious: Yes (Death, Other)
  Sender: FDA-Public Use
  Company Number: US-009507513-1505USA005896

PATIENT
  Age: 92 Year
  Sex: Female

DRUGS (4)
  1. NORVASC [Concomitant]
     Active Substance: AMLODIPINE BESYLATE
  2. ARICEPT [Concomitant]
     Active Substance: DONEPEZIL HYDROCHLORIDE
  3. BELSOMRA [Suspect]
     Active Substance: SUVOREXANT
     Indication: POOR QUALITY SLEEP
     Dosage: 10 MG, UNK
     Route: 048
  4. DALMANE [Concomitant]
     Active Substance: FLURAZEPAM HYDROCHLORIDE

REACTIONS (2)
  - Cardiac failure [Fatal]
  - Cardiac arrest [Fatal]

NARRATIVE: CASE EVENT DATE: 20150512
